FAERS Safety Report 6167251-X (Version None)
Quarter: 2009Q2

REPORT INFORMATION
  Report Type: 
  Country: None (occurrence: None)
  Receive Date: 20090424
  Receipt Date: 20090417
  Transmission Date: 20091009
  Serious: Yes (Other)
  Sender: FDA-Public Use
  Company Number: AU-ABBOTT-09P-008-0568846-00

PATIENT
  Sex: Female
  Weight: 115 kg

DRUGS (1)
  1. GOPTEN [Suspect]
     Indication: ESSENTIAL HYPERTENSION
     Dosage: 2MG DAILY
     Route: 048
     Dates: end: 20080723

REACTIONS (1)
  - PHARYNGEAL OEDEMA [None]
